FAERS Safety Report 7003680-X (Version None)
Quarter: 2010Q3

REPORT INFORMATION
  Report Type: 
  Country: None (occurrence: None)
  Receive Date: 20100920
  Receipt Date: 20090311
  Transmission Date: 20110219
  Serious: No
  Sender: FDA-Public Use
  Company Number: US-WYE-H08545309

PATIENT
  Sex: Female
  Weight: 76.27 kg

DRUGS (10)
  1. PROTONIX [Suspect]
     Indication: GASTROOESOPHAGEAL REFLUX DISEASE
     Route: 048
     Dates: start: 20090218, end: 20090309
  2. TRIAM ^LICHTENSTEIN^ [Concomitant]
  3. TOPROL-XL [Concomitant]
  4. GUANFACINE HYDROCHLORIDE [Concomitant]
  5. PREMARIN [Concomitant]
  6. MAGNESIUM [Concomitant]
  7. ADVAIR DISKUS 100/50 [Concomitant]
  8. ALBUTEROL [Concomitant]
  9. BENICAR [Concomitant]
  10. POTASSIUM [Concomitant]

REACTIONS (2)
  - DRUG INEFFECTIVE [None]
  - MEDICATION RESIDUE [None]
